FAERS Safety Report 12317867 (Version 1)
Quarter: 2016Q2

REPORT INFORMATION
  Report Type: Spontaneous
  Country: FI (occurrence: FI)
  Receive Date: 20160429
  Receipt Date: 20160429
  Transmission Date: 20160815
  Serious: Yes (Disabling, Other)
  Sender: FDA-Public Use
  Company Number: FI-ELI_LILLY_AND_COMPANY-FI201604007635

PATIENT
  Age: 50 Year
  Sex: Female

DRUGS (3)
  1. ZYPREXA [Suspect]
     Active Substance: OLANZAPINE
     Indication: SCHIZOPHRENIA
     Dosage: 30 MG, QD
     Route: 048
  2. CIPRALEX [Concomitant]
     Active Substance: ESCITALOPRAM OXALATE
     Indication: DEPRESSION
     Dosage: 10 MG, QD
     Route: 048
     Dates: start: 200411
  3. ZYPREXA [Suspect]
     Active Substance: OLANZAPINE
     Indication: PSYCHOTIC DISORDER
     Dosage: 7.5 MG, QD
     Route: 048
     Dates: start: 200411, end: 2007

REACTIONS (12)
  - Weight increased [Recovered/Resolved]
  - Syncope [Unknown]
  - Prescribed overdose [Recovering/Resolving]
  - Mouth ulceration [Recovering/Resolving]
  - Hypoacusis [Recovered/Resolved]
  - Communication disorder [Recovered/Resolved]
  - Asthenia [Recovered/Resolved]
  - Syncope [Recovering/Resolving]
  - Fall [Recovering/Resolving]
  - Tooth fracture [Recovering/Resolving]
  - Tympanic membrane perforation [Recovering/Resolving]
  - Fatigue [Recovered/Resolved]

NARRATIVE: CASE EVENT DATE: 20160205
